FAERS Safety Report 9870221 (Version 1)
Quarter: 2014Q1

REPORT INFORMATION
  Report Type: Spontaneous
  Country: US (occurrence: None)
  Receive Date: 20140204
  Receipt Date: 20140204
  Transmission Date: 20141002
  Serious: No
  Sender: FDA-Public Use
  Company Number: None

PATIENT
  Age: 20 Year
  Sex: Female
  Weight: 124.29 kg

DRUGS (11)
  1. MIACALCIN [Suspect]
     Indication: BONE DISORDER
     Dosage: 200 IU ?1 SPRAY?1 TIME DAILY??TIME DAILY?SPRAY IN NOSE
     Route: 045
     Dates: end: 20140106
  2. OMEPRAZOLE [Concomitant]
  3. ZETIA [Concomitant]
  4. VENLAFAXINE [Concomitant]
  5. SIMVASTATIN [Concomitant]
  6. CLONAZEPAN [Concomitant]
  7. LEVOTOYAOXINE [Concomitant]
  8. CLONAZEPAN [Concomitant]
  9. LOTEMAX [Concomitant]
  10. RESTASIS [Concomitant]
  11. TYLENOL [Concomitant]

REACTIONS (4)
  - Instillation site pain [None]
  - Product odour abnormal [None]
  - Product quality issue [None]
  - Product substitution issue [None]
